FAERS Safety Report 6667528-5 (Version None)
Quarter: 2010Q2

REPORT INFORMATION
  Report Type: 
  Country: None (occurrence: None)
  Receive Date: 20100405
  Receipt Date: 20100323
  Transmission Date: 20101027
  Serious: Yes (Other)
  Sender: FDA-Public Use
  Company Number: US-BAYER-201020546GPV

PATIENT
  Age: 62 Year
  Sex: Female

DRUGS (8)
  1. FLUDARABINE PHOSPHATE [Suspect]
     Indication: WALDENSTROM'S MACROGLOBULINAEMIA
     Dosage: TWO COURSES OF FLUDARABINE DAY 1-4 ONCE A MONTH
     Route: 065
  2. RITUXIMAB [Concomitant]
     Indication: WALDENSTROM'S MACROGLOBULINAEMIA
     Dosage: TWICE WEEKLY FOR FIVE CYCLES
     Route: 065
  3. METHOTREXATE [Concomitant]
     Indication: WALDENSTROM'S MACROGLOBULINAEMIA
     Dosage: FOUR CYCLES
     Route: 065
  4. VINCRISTINE [Concomitant]
     Indication: WALDENSTROM'S MACROGLOBULINAEMIA
     Dosage: FOUR CYCLES
     Route: 065
  5. PROCARBAZINE HYDROCHLORIDE [Concomitant]
     Indication: WALDENSTROM'S MACROGLOBULINAEMIA
     Route: 065
  6. LEVETIRACETAM [Concomitant]
     Indication: WALDENSTROM'S MACROGLOBULINAEMIA
     Route: 065
  7. METOPROLOL SUCCINATE [Concomitant]
     Indication: SUPRAVENTRICULAR TACHYCARDIA
     Route: 065
  8. WARFARIN SODIUM [Concomitant]
     Indication: ANTICOAGULANT THERAPY
     Route: 065
     Dates: start: 20040101

REACTIONS (1)
  - BONE MARROW FAILURE [None]
